FAERS Safety Report 22611795 (Version 2)
Quarter: 2023Q2

REPORT INFORMATION
  Report Type: Spontaneous
  Country: None (occurrence: US)
  Receive Date: 20230616
  Receipt Date: 20230623
  Transmission Date: 20230721
  Serious: Yes (Other)
  Sender: FDA-Public Use
  Company Number: US-Amphastar Pharmaceuticals, Inc.-2142793

PATIENT
  Age: 62 Year
  Sex: Male
  Weight: 104.55 kg

DRUGS (5)
  1. GLUCAGON [Suspect]
     Active Substance: GLUCAGON
     Indication: Blood glucose decreased
     Route: 058
  2. GLUCAGON [Suspect]
     Active Substance: GLUCAGON
     Indication: Type 1 diabetes mellitus
  3. DEVICE [Suspect]
     Active Substance: DEVICE
  4. DEVICE [Suspect]
     Active Substance: DEVICE
  5. DEVICE [Suspect]
     Active Substance: DEVICE

REACTIONS (3)
  - Emergency care [Recovered/Resolved]
  - Incorrect dose administered [Recovered/Resolved]
  - Vomiting [Recovered/Resolved]

NARRATIVE: CASE EVENT DATE: 20230527
